FAERS Safety Report 11301762 (Version 1)
Quarter: 2015Q3

REPORT INFORMATION
  Report Type: Spontaneous
  Country: US (occurrence: US)
  Receive Date: 20150722
  Receipt Date: 20150722
  Transmission Date: 20151125
  Serious: No
  Sender: FDA-Public Use
  Company Number: US-ELI_LILLY_AND_COMPANY-US201005001261

PATIENT
  Age: 66 Year
  Sex: Male

DRUGS (9)
  1. GABAPENTIN. [Concomitant]
     Active Substance: GABAPENTIN
     Dosage: UNK, EACH EVENING
  2. PREDNISONE. [Concomitant]
     Active Substance: PREDNISONE
     Dosage: 5 MG, EACH MORNING
  3. SYNTHROID [Concomitant]
     Active Substance: LEVOTHYROXINE SODIUM
     Dosage: 100 UG, DAILY (1/D)
  4. BENICAR [Concomitant]
     Active Substance: OLMESARTAN MEDOXOMIL
     Dosage: UNK, DAILY (1/D)
  5. ANDROGEL [Concomitant]
     Active Substance: TESTOSTERONE
     Dosage: 1 %, 3/D
  6. HUMATROPE [Suspect]
     Active Substance: SOMATROPIN
     Dosage: 0.2 MG, DAILY (1/D)
     Dates: start: 2005
  7. PREDNISONE. [Concomitant]
     Active Substance: PREDNISONE
     Dosage: 2.5 MG, EACH EVENING
  8. HYDROCHLOROTHIAZIDE. [Concomitant]
     Active Substance: HYDROCHLOROTHIAZIDE
     Dosage: 12.5 MG, UNK
  9. AMLODIPINE [Concomitant]
     Active Substance: AMLODIPINE BESYLATE
     Dosage: 5 MG, DAILY (1/D)

REACTIONS (5)
  - Hyperhidrosis [Recovered/Resolved]
  - Poor quality drug administered [Recovered/Resolved]
  - Malaise [Recovered/Resolved]
  - Epistaxis [Recovered/Resolved]
  - Pyrexia [Recovered/Resolved]

NARRATIVE: CASE EVENT DATE: 20100426
